FAERS Safety Report 7396888-5 (Version None)
Quarter: 2011Q2

REPORT INFORMATION
  Report Type: 
  Country: None (occurrence: None)
  Receive Date: 20110406
  Receipt Date: 20110104
  Transmission Date: 20111010
  Serious: No
  Sender: FDA-Public Use
  Company Number: US-BAYER-2011-027937

PATIENT
  Sex: Male

DRUGS (1)
  1. ALEVE (CAPLET) [Suspect]
     Indication: BACK PAIN
     Dosage: CONSUMER HAS BEEN TAKING 2 ALEVE DAILY FOR YEARS
     Route: 048

REACTIONS (1)
  - NO ADVERSE EVENT [None]
